FAERS Safety Report 11130901 (Version 3)
Quarter: 2015Q3

REPORT INFORMATION
  Report Type: Report from Study
  Country: US (occurrence: None)
  Receive Date: 20150520
  Receipt Date: 20150713
  Transmission Date: 20151125
  Serious: Yes (Hospitalization, Other)
  Sender: FDA-Public Use
  Company Number: ADR-2015-00964

PATIENT
  Age: 63 Year
  Sex: Female

DRUGS (3)
  1. BACLOFEN. [Suspect]
     Active Substance: BACLOFEN
  2. IVIG (IMMUNOGLOBULIN INTRAVENOUS) [Concomitant]
  3. GILENYA [Suspect]
     Active Substance: FINGOLIMOD HYDROCHLORIDE
     Indication: RELAPSING-REMITTING MULTIPLE SCLEROSIS
     Route: 048
     Dates: start: 20150504

REACTIONS (5)
  - Fall [None]
  - Epistaxis [None]
  - Dizziness [None]
  - Extra dose administered [None]
  - Heart rate decreased [None]

NARRATIVE: CASE EVENT DATE: 20150504
